FAERS Safety Report 25964527 (Version 1)
Quarter: 2025Q4

REPORT INFORMATION
  Report Type: Spontaneous
  Country: US (occurrence: None)
  Receive Date: 20251027
  Receipt Date: 20251027
  Transmission Date: 20260117
  Serious: No
  Sender: INCYTE
  Company Number: US-INCYTE CORPORATION-2025IN011469

PATIENT
  Age: 28 Year

DRUGS (6)
  1. OPZELURA [Suspect]
     Active Substance: RUXOLITINIB PHOSPHATE
     Indication: Epidermal naevus
     Dosage: UNK
     Route: 065
  2. CLOBETASOL [Concomitant]
     Active Substance: CLOBETASOL
     Indication: Epidermal naevus
     Dosage: UNK
     Route: 065
  3. CHOLESTEROL [Concomitant]
     Active Substance: CHOLESTEROL
     Indication: Epidermal naevus
     Dosage: UNK
     Route: 065
  4. LOVASTATIN [Concomitant]
     Active Substance: LOVASTATIN
     Indication: Epidermal naevus
     Dosage: UNK
     Route: 065
  5. TRIAMCINOLONE [Concomitant]
     Active Substance: TRIAMCINOLONE
     Indication: Epidermal naevus
     Dosage: 5 MG/CC
     Route: 065
  6. RISANKIZUMAB [Concomitant]
     Active Substance: RISANKIZUMAB
     Indication: Epidermal naevus
     Dosage: UNK
     Route: 065

REACTIONS (2)
  - Drug ineffective for unapproved indication [Unknown]
  - Off label use [Unknown]
